FAERS Safety Report 8555429 (Version 2)
Quarter: 2012Q4

REPORT INFORMATION
  Report Type: 
  Country: NL (occurrence: NL)
  Receive Date: 20120510
  Receipt Date: 20121001
  Transmission Date: 20130627
  Serious: Yes (Other)
  Sender: FDA-Public Use
  Company Number: PHHY2012NL029622

PATIENT
  Age: 61 None
  Sex: Female
  Weight: 76 kg

DRUGS (15)
  1. TOBI PODHALER [Suspect]
     Indication: PSEUDOMONAS INFECTION
     Dosage: 4 DF, BID
     Dates: start: 201111, end: 20120322
  2. TACROLIMUS [Concomitant]
     Dosage: 2 mg, BID
  3. CELLCEPT [Concomitant]
     Dosage: 500 mg, BID
  4. PREDNISOLONE [Concomitant]
  5. CO-TRIMOXAZOL [Concomitant]
  6. LOSEC [Concomitant]
     Dosage: 20 mg, UNK
  7. MAGNESIUM HYDROXIDE [Concomitant]
  8. CALCICHEW [Concomitant]
     Dosage: 1 g, UNK
  9. ACTONEL [Concomitant]
     Dosage: 35 mg,  per week
  10. FLUIMUCIL [Concomitant]
     Dosage: 600 mg, UNK
  11. IMIGRAN [Concomitant]
  12. SELOKEEN [Concomitant]
  13. VENTOLIN [Concomitant]
  14. FLIXONASE [Concomitant]
  15. ZITROMAX [Concomitant]
     Dosage: 250 mg, every other day

REACTIONS (9)
  - Drug level increased [Recovered/Resolved]
  - Aphonia [Recovered/Resolved]
  - Oropharyngeal pain [Recovered/Resolved]
  - Nausea [Recovered/Resolved]
  - Dizziness [Recovered/Resolved]
  - Dysphonia [Recovered/Resolved]
  - Tinnitus [Recovered/Resolved]
  - Wheezing [Recovered/Resolved]
  - Dyspnoea [Recovered/Resolved]
